FAERS Safety Report 6146479-9 (Version None)
Quarter: 2009Q2

REPORT INFORMATION
  Report Type: 
  Country: None (occurrence: None)
  Receive Date: 20090407
  Receipt Date: 20090401
  Transmission Date: 20091009
  Serious: Yes (Other)
  Sender: FDA-Public Use
  Company Number: B0557924A

PATIENT
  Sex: Female

DRUGS (5)
  1. RELENZA [Suspect]
     Indication: INFLUENZA
     Dosage: 10MG TWICE PER DAY
     Route: 055
     Dates: start: 20090202, end: 20090202
  2. CEFZON [Concomitant]
     Indication: INFLUENZA
     Dosage: 300MG PER DAY
     Route: 048
     Dates: start: 20090202, end: 20090204
  3. PENTOXYVERINE [Concomitant]
     Indication: INFLUENZA
     Dosage: 90MG PER DAY
     Route: 048
     Dates: start: 20090202, end: 20090204
  4. MUCODYNE [Concomitant]
     Indication: INFLUENZA
     Dosage: 1500MG PER DAY
     Route: 048
     Dates: start: 20090202, end: 20090204
  5. CALONAL [Concomitant]
     Indication: INFLUENZA
     Route: 048
     Dates: start: 20090202, end: 20090204

REACTIONS (3)
  - HYPOAESTHESIA [None]
  - SHOCK [None]
  - SYNCOPE [None]
